FAERS Safety Report 7285902-3 (Version None)
Quarter: 2011Q1

REPORT INFORMATION
  Report Type: 
  Country: None (occurrence: None)
  Receive Date: 20110210
  Receipt Date: 20110201
  Transmission Date: 20110831
  Serious: Yes (Hospitalization, Other)
  Sender: FDA-Public Use
  Company Number: US-SANOFI-AVENTIS-2011SA007064

PATIENT
  Age: 64 Year
  Sex: Female

DRUGS (2)
  1. LANTUS [Suspect]
     Indication: TYPE 2 DIABETES MELLITUS
     Dosage: DOSE:9 UNIT(S)
     Route: 058
  2. NOVOLOG [Concomitant]
     Dosage: 2 UNITS WITH MEALS DOSE:2 UNIT(S)
     Route: 065

REACTIONS (4)
  - GLAUCOMA [None]
  - RENAL FAILURE [None]
  - PNEUMONIA [None]
  - WEIGHT INCREASED [None]
